FAERS Safety Report 20903225 (Version 5)
Quarter: 2023Q1

REPORT INFORMATION
  Report Type: Report from Study
  Country: US (occurrence: US)
  Receive Date: 20220601
  Receipt Date: 20230227
  Transmission Date: 20230417
  Serious: Yes (Hospitalization)
  Sender: FDA-Public Use
  Company Number: US-TAKEDA-2022TUS036319

PATIENT
  Sex: Female
  Weight: 74 kg

DRUGS (8)
  1. TEDUGLUTIDE [Suspect]
     Active Substance: TEDUGLUTIDE
     Indication: Intestinal fistula
     Dosage: 3.69 MILLIGRAM, QD
     Route: 058
  2. TEDUGLUTIDE [Suspect]
     Active Substance: TEDUGLUTIDE
     Indication: Intestinal fistula
     Dosage: 3.69 MILLIGRAM, QD
     Route: 058
  3. TEDUGLUTIDE [Suspect]
     Active Substance: TEDUGLUTIDE
     Indication: Intestinal fistula
     Dosage: 3.69 MILLIGRAM, QD
     Route: 058
  4. TEDUGLUTIDE [Suspect]
     Active Substance: TEDUGLUTIDE
     Indication: Intestinal fistula
     Dosage: 3.69 MILLIGRAM, QD
     Route: 058
  5. TEDUGLUTIDE [Suspect]
     Active Substance: TEDUGLUTIDE
     Indication: Malnutrition
     Dosage: 3.69 MILLIGRAM, QD
     Route: 058
     Dates: start: 20220331
  6. TEDUGLUTIDE [Suspect]
     Active Substance: TEDUGLUTIDE
     Indication: Malnutrition
     Dosage: 3.69 MILLIGRAM, QD
     Route: 058
     Dates: start: 20220331
  7. TEDUGLUTIDE [Suspect]
     Active Substance: TEDUGLUTIDE
     Indication: Malnutrition
     Dosage: 3.69 MILLIGRAM, QD
     Route: 058
     Dates: start: 20220331
  8. TEDUGLUTIDE [Suspect]
     Active Substance: TEDUGLUTIDE
     Indication: Malnutrition
     Dosage: 3.69 MILLIGRAM, QD
     Route: 058
     Dates: start: 20220331

REACTIONS (12)
  - Hospitalisation [Unknown]
  - Peripheral swelling [Unknown]
  - Balance disorder [Unknown]
  - Mass [Unknown]
  - Limb injury [Unknown]
  - Head injury [Unknown]
  - Fall [Unknown]
  - Walking aid user [Unknown]
  - Abdominal pain upper [Unknown]
  - Urinary tract infection [Unknown]
  - Insurance issue [Unknown]
  - Product dose omission issue [Unknown]
